FAERS Safety Report 8890417 (Version 5)
Quarter: 2013Q2

REPORT INFORMATION
  Report Type: Spontaneous
  Country: US (occurrence: US)
  Receive Date: 20121107
  Receipt Date: 20130517
  Transmission Date: 20140414
  Serious: Yes (Hospitalization)
  Sender: FDA-Public Use
  Company Number: US-B.I. PHARMACEUTICALS,INC./RIDGEFIELD-2012-BP-27145BP

PATIENT
  Age: 77 Year
  Sex: Male
  Weight: 71.21 kg

DRUGS (11)
  1. PRADAXA [Suspect]
     Indication: ANTICOAGULANT THERAPY
     Dosage: 300 MG
     Route: 048
     Dates: start: 20111212, end: 20120115
  2. PRADAXA [Suspect]
     Indication: ATRIAL FIBRILLATION
  3. LORTAB [Concomitant]
     Indication: ARTHRITIS
     Dates: start: 201003
  4. AMLODIPINE [Concomitant]
     Dosage: 10 MG
     Dates: start: 201003
  5. CARVEDILOL [Concomitant]
     Dosage: 25 MG
     Dates: start: 201003
  6. KLONOPIN [Concomitant]
     Dates: start: 201003
  7. SIMVASTATIN [Concomitant]
     Indication: DYSLIPIDAEMIA
     Dosage: 40 MG
     Dates: start: 201103
  8. NAMENDA [Concomitant]
     Dosage: 10 MG
     Dates: start: 201110
  9. ASPIRIN [Concomitant]
     Dosage: 81 MG
  10. BENAZEPRIL [Concomitant]
     Dosage: 40 MG
     Dates: start: 201003
  11. HYDROCHLOROTHIAZIDE [Concomitant]

REACTIONS (3)
  - Gastrointestinal haemorrhage [Unknown]
  - Haemorrhagic anaemia [Unknown]
  - Increased tendency to bruise [Unknown]
